FAERS Safety Report 6822060-0 (Version None)
Quarter: 2010Q3

REPORT INFORMATION
  Report Type: 
  Country: None (occurrence: None)
  Receive Date: 20100706
  Receipt Date: 20100619
  Transmission Date: 20110219
  Serious: Yes (Other)
  Sender: FDA-Public Use
  Company Number: 1000014803

PATIENT
  Age: 20 Year
  Sex: Female
  Weight: 40 kg

DRUGS (1)
  1. ESCITALOPRAM [Suspect]

REACTIONS (1)
  - OVARIAN CYST [None]
